FAERS Safety Report 5648086-0 (Version None)
Quarter: 2008Q1

REPORT INFORMATION
  Report Type: 
  Country: None (occurrence: None)
  Receive Date: 20080229
  Receipt Date: 20080229
  Transmission Date: 20080703
  Serious: Yes (Hospitalization)
  Sender: FDA-Public Use
  Company Number: None

PATIENT
  Age: 61 Year
  Sex: Male
  Weight: 116 kg

DRUGS (2)
  1. SIMVASTATIN [Suspect]
     Indication: DYSLIPIDAEMIA
     Dosage: 80MG EVERY DAY PO
     Route: 048
     Dates: start: 20061218, end: 20080109
  2. GEMFIBROZIL [Suspect]
     Dosage: 600MG BID PO
     Route: 048
     Dates: start: 20071217, end: 20080109

REACTIONS (3)
  - BLOOD CREATINE PHOSPHOKINASE INCREASED [None]
  - INFECTION [None]
  - MYALGIA [None]
